FAERS Safety Report 23975245 (Version 1)
Quarter: 2024Q2

REPORT INFORMATION
  Report Type: Spontaneous
  Country: US (occurrence: US)
  Receive Date: 20240614
  Receipt Date: 20240614
  Transmission Date: 20240716
  Serious: No
  Sender: FDA-Public Use
  Company Number: US-GLK-002346

PATIENT
  Age: 23 Year
  Sex: Male

DRUGS (2)
  1. PHOTREXA [Suspect]
     Active Substance: RIBOFLAVIN 5^-PHOSPHATE SODIUM
     Indication: Keratoconus
     Dosage: LEFT EYE NOV/DEC 2023
     Route: 047
  2. PHOTREXA VISCOUS [Suspect]
     Active Substance: RIBOFLAVIN 5^-PHOSPHATE SODIUM
     Indication: Keratoconus
     Dosage: LEFT EYE NOV/DEC 2023
     Route: 047
     Dates: start: 2023, end: 2023

REACTIONS (2)
  - Eye pain [Recovered/Resolved]
  - Eye pruritus [Recovered/Resolved]
